FAERS Safety Report 13520743 (Version 2)
Quarter: 2019Q1

REPORT INFORMATION
  Report Type: Spontaneous
  Country: US (occurrence: US)
  Receive Date: 20170508
  Receipt Date: 20190327
  Transmission Date: 20190417
  Serious: Yes (Hospitalization)
  Sender: FDA-Public Use
  Company Number: US-TEVA-738264ACC

PATIENT
  Sex: Female
  Weight: 81.19 kg

DRUGS (7)
  1. EPOPROSTENOL SODIUM. [Suspect]
     Active Substance: EPOPROSTENOL SODIUM
     Dosage: 23 NG/KG/MIN
     Route: 042
  2. REVATIO [Concomitant]
     Active Substance: SILDENAFIL CITRATE
  3. TRACLEER [Concomitant]
     Active Substance: BOSENTAN
  4. XARELTO [Concomitant]
     Active Substance: RIVAROXABAN
  5. EPOPROSTENOL SODIUM. [Suspect]
     Active Substance: EPOPROSTENOL SODIUM
     Indication: PULMONARY ARTERIAL HYPERTENSION
     Dosage: 18.0 NG/KG/MIN
     Route: 042
     Dates: start: 20150808
  6. COUMADIN [Concomitant]
     Active Substance: WARFARIN SODIUM
  7. EPOPROSTENOL TEVA [Concomitant]

REACTIONS (3)
  - Pneumonia [Unknown]
  - Pharyngitis streptococcal [Unknown]
  - Corona virus infection [Unknown]
